FAERS Safety Report 9051423 (Version 1)
Quarter: 2013Q1

REPORT INFORMATION
  Report Type: Spontaneous
  Country: US (occurrence: US)
  Receive Date: 20130206
  Receipt Date: 20130206
  Transmission Date: 20140127
  Serious: No
  Sender: FDA-Public Use
  Company Number: US-ALLERGAN-1208341US

PATIENT
  Sex: Female

DRUGS (2)
  1. RESTASIS [Suspect]
     Indication: DRY EYE
     Dosage: 2 GTT, BID
     Route: 047
     Dates: start: 201202
  2. THERATEARS                         /00007001/ [Concomitant]
     Indication: DRY EYE
     Dosage: 2 GTT, BID
     Route: 047
     Dates: start: 201202

REACTIONS (4)
  - Asthenopia [Recovering/Resolving]
  - Fatigue [Recovering/Resolving]
  - Eye irritation [Recovering/Resolving]
  - Lacrimation increased [Recovering/Resolving]
